FAERS Safety Report 6426755-2 (Version None)
Quarter: 2009Q4

REPORT INFORMATION
  Report Type: 
  Country: None (occurrence: None)
  Receive Date: 20091104
  Receipt Date: 20091030
  Transmission Date: 20100525
  Serious: Yes (Death, Hospitalization, Other)
  Sender: FDA-Public Use
  Company Number: DE-CELGENEUS-062-50794-09080460

PATIENT
  Sex: Female
  Weight: 80 kg

DRUGS (6)
  1. VIDAZA [Suspect]
     Route: 050
     Dates: start: 20081210, end: 20090615
  2. MST [Concomitant]
     Indication: PAIN
     Route: 058
     Dates: start: 20090804, end: 20090804
  3. SIOFOR [Concomitant]
     Route: 065
  4. ACTOS [Concomitant]
     Route: 065
  5. FLUCONAZOLE [Concomitant]
     Indication: DRUG USE FOR UNKNOWN INDICATION
     Route: 065
  6. ERYTHROCYTES [Concomitant]
     Indication: PANCYTOPENIA
     Route: 051

REACTIONS (2)
  - ACUTE MYELOID LEUKAEMIA [None]
  - URINARY TRACT INFECTION ENTEROCOCCAL [None]
